FAERS Safety Report 5495533-3 (Version None)
Quarter: 2007Q4

REPORT INFORMATION
  Report Type: 
  Country: None (occurrence: None)
  Receive Date: 20071018
  Receipt Date: 20061219
  Transmission Date: 20080405
  Serious: Yes (Hospitalization, Other)
  Sender: FDA-Public Use
  Company Number: 2005128849

PATIENT
  Age: 29 Year
  Sex: Female

DRUGS (2)
  1. NEURONTIN [Suspect]
     Indication: ANXIETY
     Dosage: (300 MG)
     Dates: start: 20031107
  2. NEURONTIN [Suspect]
     Indication: OBSESSIVE-COMPULSIVE DISORDER
     Dosage: (300 MG)
     Dates: start: 20031107

REACTIONS (6)
  - ANGER [None]
  - DEPRESSION [None]
  - DISTURBANCE IN ATTENTION [None]
  - DRUG INEFFECTIVE [None]
  - INSOMNIA [None]
  - SUICIDE ATTEMPT [None]
